FAERS Safety Report 19441395 (Version 1)
Quarter: 2021Q2

REPORT INFORMATION
  Report Type: Spontaneous
  Country: US (occurrence: US)
  Receive Date: 20210621
  Receipt Date: 20210621
  Transmission Date: 20210717
  Serious: No
  Sender: FDA-Public Use
  Company Number: US-THERAPEUTICSMD-2021TMD01832

PATIENT
  Age: 70 Year
  Sex: Female
  Weight: 60.77 kg

DRUGS (8)
  1. JOINT SUPPLEMENT [Concomitant]
  2. CALCIUM [Concomitant]
     Active Substance: CALCIUM
  3. IMVEXXY [Suspect]
     Active Substance: ESTRADIOL
     Indication: DYSPAREUNIA
     Dosage: 10 ?G, 2X/WEEK
     Route: 067
     Dates: start: 202103
  4. SYNTHROID [Suspect]
     Active Substance: LEVOTHYROXINE SODIUM
     Indication: THYROID DISORDER
     Dosage: 112 ?G
     Dates: end: 202104
  5. XYZAL [Concomitant]
     Active Substance: LEVOCETIRIZINE DIHYDROCHLORIDE
  6. SYNTHROID [Suspect]
     Active Substance: LEVOTHYROXINE SODIUM
     Dosage: 125 ?G
     Dates: start: 202104
  7. PRAVASTATIN. [Concomitant]
     Active Substance: PRAVASTATIN
  8. GLUCOSAMINE [Concomitant]
     Active Substance: GLUCOSAMINE

REACTIONS (6)
  - Anxiety [Recovering/Resolving]
  - Somnolence [Unknown]
  - Abnormal behaviour [Recovering/Resolving]
  - Thyroid function test abnormal [Unknown]
  - Emotional disorder [Recovering/Resolving]
  - Performance status decreased [Unknown]

NARRATIVE: CASE EVENT DATE: 2021
